FAERS Safety Report 18377848 (Version 2)
Quarter: 2020Q4

REPORT INFORMATION
  Report Type: Spontaneous
  Country: DZ (occurrence: DZ)
  Receive Date: 20201013
  Receipt Date: 20201102
  Transmission Date: 20210114
  Serious: Yes (Death)
  Sender: FDA-Public Use
  Company Number: DZ-BIOVITRUM-2020DZ5412

PATIENT
  Age: 5 Month
  Sex: Female

DRUGS (1)
  1. ORFADIN [Suspect]
     Active Substance: NITISINONE
     Indication: TYROSINAEMIA
     Route: 048
     Dates: start: 20200930

REACTIONS (5)
  - Hepatosplenomegaly [Fatal]
  - Seizure [Fatal]
  - Epilepsy [Fatal]
  - Infection [Fatal]
  - Nervous system disorder [Fatal]

NARRATIVE: CASE EVENT DATE: 20201002
